FAERS Safety Report 16566979 (Version 1)
Quarter: 2019Q3

REPORT INFORMATION
  Report Type: Spontaneous
  Country: BR (occurrence: BR)
  Receive Date: 20190712
  Receipt Date: 20190712
  Transmission Date: 20191004
  Serious: Yes (Death)
  Sender: FDA-Public Use
  Company Number: BR-PFIZER INC-2019242602

PATIENT
  Age: 42 Year
  Sex: Male
  Weight: 84 kg

DRUGS (1)
  1. SUTENT [Suspect]
     Active Substance: SUNITINIB MALATE
     Indication: NEOPLASM
     Dosage: 50 MG, ONCE A DAY
     Dates: start: 20190603

REACTIONS (9)
  - Dry mouth [Recovered/Resolved]
  - Skin exfoliation [Recovering/Resolving]
  - Product use in unapproved indication [Unknown]
  - Chromaturia [Recovered/Resolved]
  - Arthralgia [Not Recovered/Not Resolved]
  - Death [Fatal]
  - Off label use [Unknown]
  - Dry skin [Recovering/Resolving]
  - Groin pain [Not Recovered/Not Resolved]

NARRATIVE: CASE EVENT DATE: 201906
